FAERS Safety Report 22346878 (Version 1)
Quarter: 2023Q2

REPORT INFORMATION
  Report Type: Spontaneous
  Country: CA (occurrence: CA)
  Receive Date: 20230520
  Receipt Date: 20230520
  Transmission Date: 20230721
  Serious: Yes (Other)
  Sender: FDA-Public Use
  Company Number: CA-002147023-NVSC2023CA111385

PATIENT
  Age: 76 Year
  Sex: Male

DRUGS (5)
  1. DEXAMETHASONE [Suspect]
     Active Substance: DEXAMETHASONE
     Indication: Plasma cell myeloma
     Dosage: UNK
     Route: 065
  2. IXAZOMIB [Suspect]
     Active Substance: IXAZOMIB
     Indication: Plasma cell myeloma
     Dosage: 4 MG
     Route: 048
  3. IXAZOMIB [Suspect]
     Active Substance: IXAZOMIB
     Dosage: 3 MG
     Route: 048
  4. IXAZOMIB [Suspect]
     Active Substance: IXAZOMIB
     Dosage: 3 MG
     Route: 048
  5. LENALIDOMIDE [Concomitant]
     Active Substance: LENALIDOMIDE
     Indication: Product used for unknown indication
     Dosage: UNK
     Route: 065

REACTIONS (3)
  - Neuropathy peripheral [Unknown]
  - Fatigue [Unknown]
  - Thrombocytopenia [Unknown]
